FAERS Safety Report 9290678 (Version 4)
Quarter: 2013Q3

REPORT INFORMATION
  Report Type: Spontaneous
  Country: US (occurrence: US)
  Receive Date: 20130515
  Receipt Date: 20130820
  Transmission Date: 20140515
  Serious: Yes (Death, Hospitalization, Disabling)
  Sender: FDA-Public Use
  Company Number: US-ACTELION-A-NJ2013-83100

PATIENT
  Age: 2 Year
  Sex: Male

DRUGS (4)
  1. TRACLEER [Suspect]
     Indication: PULMONARY HYPERTENSION
     Dosage: 31.25 MG, BID
     Route: 048
     Dates: end: 2013
  2. TRACLEER [Suspect]
     Dosage: 8 MG, BID
     Route: 048
     Dates: start: 20120412, end: 20120425
  3. TRACLEER [Suspect]
     Dosage: 31.25 MG, BID
     Route: 048
     Dates: start: 2013
  4. ADCIRCA [Concomitant]

REACTIONS (2)
  - Brain cancer metastatic [Fatal]
  - Brain operation [Recovering/Resolving]
